FAERS Safety Report 5931300-1 (Version None)
Quarter: 2008Q4

REPORT INFORMATION
  Report Type: 
  Country: None (occurrence: None)
  Receive Date: 20081024
  Receipt Date: 20081024
  Transmission Date: 20090506
  Serious: Yes (Hospitalization)
  Sender: FDA-Public Use
  Company Number: None

PATIENT
  Sex: Female
  Weight: 64 kg

DRUGS (3)
  1. FLUOROURACIL [Suspect]
     Dosage: 5460 MG
  2. CISPLATIN [Suspect]
     Dosage: 136 MG
  3. ERBITUX [Suspect]
     Dosage: 455 MG

REACTIONS (14)
  - CANDIDIASIS [None]
  - CYSTITIS RADIATION [None]
  - DEHYDRATION [None]
  - DIARRHOEA HAEMORRHAGIC [None]
  - DYSURIA [None]
  - FUNGAL INFECTION [None]
  - GASTROENTERITIS RADIATION [None]
  - HYPOKALAEMIA [None]
  - HYPONATRAEMIA [None]
  - OXYGEN SATURATION DECREASED [None]
  - PALLOR [None]
  - SKIN DISORDER [None]
  - SKIN TURGOR DECREASED [None]
  - VULVOVAGINAL DISCOMFORT [None]
